FAERS Safety Report 21126107 (Version 4)
Quarter: 2023Q1

REPORT INFORMATION
  Report Type: Report from Study
  Country: CA (occurrence: CA)
  Receive Date: 20220725
  Receipt Date: 20230130
  Transmission Date: 20230418
  Serious: Yes (Hospitalization, Disabling)
  Sender: FDA-Public Use
  Company Number: CA-JNJFOC-20220527116

PATIENT
  Age: 70 Year
  Sex: Male

DRUGS (1)
  1. REMICADE [Suspect]
     Active Substance: INFLIXIMAB
     Indication: Crohn^s disease
     Dosage: PATIENT RECEIVED LAST INFUSION ON JAN-2023
     Route: 042
     Dates: start: 20150515

REACTIONS (5)
  - Renal cancer [Unknown]
  - Cerebrovascular accident [Unknown]
  - Haemorrhage [Not Recovered/Not Resolved]
  - Paralysis [Not Recovered/Not Resolved]
  - Procedural complication [Not Recovered/Not Resolved]

NARRATIVE: CASE EVENT DATE: 20220501
